FAERS Safety Report 5646667-1 (Version None)
Quarter: 2008Q1

REPORT INFORMATION
  Report Type: 
  Country: None (occurrence: None)
  Receive Date: 20080303
  Receipt Date: 20080222
  Transmission Date: 20080703
  Serious: Yes (Hospitalization, Other)
  Sender: FDA-Public Use
  Company Number: PHBS2008BR02603

PATIENT
  Age: 62 Year
  Sex: Female
  Weight: 80 kg

DRUGS (10)
  1. DIOVAN HCT [Suspect]
     Indication: HYPERTENSION
     Dosage: VALS 80 / HCT 12.5 MG/DAY
     Route: 048
     Dates: start: 20060101
  2. SIMVASTATIN [Concomitant]
     Dosage: 20 MG, QD
     Route: 048
  3. METFORMIN HCL [Concomitant]
     Dosage: 850 MG, TID
     Route: 048
  4. ACTOS [Concomitant]
     Dosage: 15 MG, QD
     Route: 048
  5. BISOPROLOL FUMARATE [Concomitant]
     Indication: DIABETES MELLITUS
     Dosage: 5 MG, QD
     Route: 048
  6. ASPIRIN [Concomitant]
     Dosage: 100 MG, BID
     Route: 048
  7. CIPROFIBRATE [Concomitant]
     Dosage: 1 MG, QD
     Route: 048
  8. GLIMEPIRIDE [Concomitant]
     Dosage: 4 MG, BID
     Route: 048
  9. LEVENIR [Concomitant]
     Indication: DIABETES MELLITUS
     Dosage: UNK, PRN
  10. INSULIN [Concomitant]
     Indication: DIABETES MELLITUS
     Dosage: UNK, PRN

REACTIONS (1)
  - PULMONARY EMBOLISM [None]
